FAERS Safety Report 4953059-7 (Version None)
Quarter: 2006Q1

REPORT INFORMATION
  Report Type: 
  Country: None (occurrence: None)
  Receive Date: 20060320
  Receipt Date: 20060314
  Transmission Date: 20060701
  Serious: Yes (Life-Threatening, Hospitalization)
  Sender: FDA-Public Use
  Company Number: 701984

PATIENT
  Age: 51 Year
  Sex: Male
  Weight: 71.6683 kg

DRUGS (8)
  1. AMEVIVE [Suspect]
     Indication: PSORIASIS
     Dosage: 15 MG;QW;IM
     Route: 030
     Dates: start: 20031209, end: 20040227
  2. LASIX [Concomitant]
  3. PROTONIX [Concomitant]
  4. SPIRONOLACTONE [Concomitant]
  5. IRON SULFATETHIAMIN COMPOUND TAB [Concomitant]
  6. LEXAPRO [Concomitant]
  7. NEOMYCIN [Concomitant]
  8. LEVAQUIN [Concomitant]

REACTIONS (47)
  - ACTIVATED PARTIAL THROMBOPLASTIN TIME SHORTENED [None]
  - ANAEMIA [None]
  - ASTERIXIS [None]
  - ATRIAL SEPTAL DEFECT [None]
  - BLOOD ALBUMIN DECREASED [None]
  - BLOOD CALCIUM DECREASED [None]
  - BLOOD SODIUM DECREASED [None]
  - BOWEL SOUNDS ABNORMAL [None]
  - BRAIN STEM INFARCTION [None]
  - CACHEXIA [None]
  - CARDIO-RESPIRATORY ARREST [None]
  - CIRRHOSIS ALCOHOLIC [None]
  - COAGULOPATHY [None]
  - COMA HEPATIC [None]
  - CONDITION AGGRAVATED [None]
  - DEEP VEIN THROMBOSIS [None]
  - DEHYDRATION [None]
  - DYSARTHRIA [None]
  - ECCHYMOSIS [None]
  - ENCEPHALOPATHY [None]
  - EXOPHTHALMOS [None]
  - FLUID RETENTION [None]
  - GASTRIC VARICES [None]
  - GASTRITIS [None]
  - GASTROINTESTINAL HAEMORRHAGE [None]
  - HAEMATOMA [None]
  - HAEMODYNAMIC INSTABILITY [None]
  - HEPATIC CIRRHOSIS [None]
  - HEPATIC FAILURE [None]
  - INTERNATIONAL NORMALISED RATIO INCREASED [None]
  - LARYNGOSPASM [None]
  - LIPASE INCREASED [None]
  - LIVER TRANSPLANT [None]
  - MALNUTRITION [None]
  - METABOLIC ACIDOSIS [None]
  - NAUSEA [None]
  - OEDEMA PERIPHERAL [None]
  - PITTING OEDEMA [None]
  - PLATELET COUNT DECREASED [None]
  - PROCEDURAL COMPLICATION [None]
  - PSORIASIS [None]
  - RENAL FAILURE [None]
  - RESPIRATORY ARREST [None]
  - SOMNOLENCE [None]
  - TELANGIECTASIA [None]
  - VARICES OESOPHAGEAL [None]
  - WHITE BLOOD CELL COUNT INCREASED [None]
